FAERS Safety Report 5019843-9 (Version None)
Quarter: 2006Q2

REPORT INFORMATION
  Report Type: 
  Country: None (occurrence: None)
  Receive Date: 20060607
  Receipt Date: 20060524
  Transmission Date: 20061013
  Serious: Yes (Hospitalization)
  Sender: FDA-Public Use
  Company Number: PHHO2006BR08655

PATIENT
  Age: 55 Year
  Sex: Female
  Weight: 75 kg

DRUGS (4)
  1. CODATEN [Suspect]
     Indication: PROCEDURAL PAIN
     Dosage: 50 MG, TID
     Route: 048
     Dates: start: 20060523, end: 20060523
  2. FORASEQ [Suspect]
     Indication: ASTHMA
     Dosage: 12 / 400 UG BID
     Dates: end: 20060522
  3. FORASEQ [Suspect]
     Dosage: 12 / 400 UG BID
     Dates: start: 20060524
  4. STARFORM [Suspect]
     Indication: DIABETES MELLITUS
     Route: 048
     Dates: end: 20060512

REACTIONS (7)
  - ANAL FISTULA [None]
  - ANAL FISTULA EXCISION [None]
  - BOWEL SOUNDS ABNORMAL [None]
  - DIZZINESS [None]
  - ERYTHEMA [None]
  - PROCEDURAL PAIN [None]
  - PRURITUS [None]
